FAERS Safety Report 11862015 (Version 1)
Quarter: 2015Q4

REPORT INFORMATION
  Report Type: Spontaneous
  Country: US (occurrence: US)
  Receive Date: 20151222
  Receipt Date: 20151222
  Transmission Date: 20160305
  Serious: No
  Sender: FDA-Public Use
  Company Number: US-ROCHE-1070040

PATIENT
  Sex: Male

DRUGS (3)
  1. PEGASYS [Suspect]
     Active Substance: PEGINTERFERON ALFA-2A
     Indication: CHRONIC HEPATITIS C
     Route: 058
     Dates: start: 20120516
  2. TELAPREVIR [Suspect]
     Active Substance: TELAPREVIR
     Indication: CHRONIC HEPATITIS C
     Route: 065
     Dates: start: 20120516, end: 20120617
  3. RIBASPHERE RIBAPAK [Suspect]
     Active Substance: RIBAVIRIN
     Indication: CHRONIC HEPATITIS C
     Route: 048
     Dates: start: 20120516

REACTIONS (11)
  - Headache [Unknown]
  - Injection site erythema [Unknown]
  - Injection site reaction [Unknown]
  - Vision blurred [Unknown]
  - Skin warm [Unknown]
  - Abdominal discomfort [Unknown]
  - Rash erythematous [Unknown]
  - Rash [Unknown]
  - Nausea [Unknown]
  - Erythema [Unknown]
  - Anal pruritus [Unknown]
